FAERS Safety Report 6934571-8 (Version None)
Quarter: 2010Q3

REPORT INFORMATION
  Report Type: 
  Country: None (occurrence: None)
  Receive Date: 20100820
  Receipt Date: 20100812
  Transmission Date: 20110219
  Serious: Yes (Disabling)
  Sender: FDA-Public Use
  Company Number: US-US-EMD SERONO, INC.-7014249

PATIENT
  Sex: Female

DRUGS (8)
  1. REBIF [Suspect]
     Indication: MULTIPLE SCLEROSIS
     Route: 058
     Dates: start: 20100127, end: 20100701
  2. AMANTADINE [Suspect]
     Indication: ASTHENIA
     Dates: start: 20090101, end: 20100101
  3. GABAPENTIN [Concomitant]
     Indication: MULTIPLE SCLEROSIS
  4. METFORMIN [Concomitant]
     Indication: TYPE 2 DIABETES MELLITUS
  5. HYDROCHLOROTHIAZIDE [Concomitant]
     Indication: HYPERTENSION
  6. LOPRESSOR [Concomitant]
     Indication: HYPERTENSION
  7. CYMBALTA [Concomitant]
     Dates: start: 20100301
  8. AMBIEN [Concomitant]
     Indication: INSOMNIA

REACTIONS (1)
  - BLINDNESS [None]
